FAERS Safety Report 15261061 (Version 1)
Quarter: 2018Q3

REPORT INFORMATION
  Report Type: Spontaneous
  Country: CA (occurrence: CA)
  Receive Date: 20180809
  Receipt Date: 20180809
  Transmission Date: 20181010
  Serious: Yes (Other)
  Sender: FDA-Public Use
  Company Number: CA-TEVA-2018-CA-935695

PATIENT
  Sex: Female

DRUGS (2)
  1. METHOTREXATE. [Suspect]
     Active Substance: METHOTREXATE
     Route: 048
  2. FOLIC ACID. [Concomitant]
     Active Substance: FOLIC ACID

REACTIONS (6)
  - Diarrhoea [Unknown]
  - Haematochezia [Unknown]
  - Overdose [Unknown]
  - Vomiting [Unknown]
  - Circumstance or information capable of leading to medication error [Unknown]
  - Oral mucosal blistering [Unknown]
